FAERS Safety Report 14149832 (Version 5)
Quarter: 2022Q4

REPORT INFORMATION
  Report Type: Report from Study
  Country: CA (occurrence: CA)
  Receive Date: 20171101
  Receipt Date: 20221121
  Transmission Date: 20230112
  Serious: Yes (Other)
  Sender: FDA-Public Use
  Company Number: PHHY2017CA158824

PATIENT
  Sex: Female

DRUGS (3)
  1. ELTROMBOPAG OLAMINE [Suspect]
     Active Substance: ELTROMBOPAG OLAMINE
     Indication: Immune thrombocytopenia
     Dosage: 50 MG, UNK
     Route: 048
     Dates: start: 20171020
  2. ELTROMBOPAG OLAMINE [Suspect]
     Active Substance: ELTROMBOPAG OLAMINE
     Indication: Hepatitis C
     Dosage: 25 MG, QD
     Route: 048
  3. ELTROMBOPAG OLAMINE [Suspect]
     Active Substance: ELTROMBOPAG OLAMINE
     Dosage: 25 MG, QD
     Route: 048
     Dates: start: 20170901

REACTIONS (14)
  - Oral blood blister [Unknown]
  - Chronic cheek biting [Unknown]
  - Tongue biting [Unknown]
  - Platelet count decreased [Unknown]
  - Malaise [Unknown]
  - Pain [Recovering/Resolving]
  - Toothache [Unknown]
  - Dyspepsia [Recovered/Resolved]
  - Hypoaesthesia [Not Recovered/Not Resolved]
  - Petechiae [Unknown]
  - Epistaxis [Unknown]
  - Oropharyngeal pain [Unknown]
  - Gingival bleeding [Unknown]
  - Mouth swelling [Unknown]
